FAERS Safety Report 6285112-2 (Version None)
Quarter: 2009Q3

REPORT INFORMATION
  Report Type: 
  Country: None (occurrence: None)
  Receive Date: 20090727
  Receipt Date: 20090720
  Transmission Date: 20100115
  Serious: Yes (Other)
  Sender: FDA-Public Use
  Company Number: FR-BRISTOL-MYERS SQUIBB COMPANY-14711378

PATIENT
  Age: 61 Year
  Sex: Male
  Weight: 70 kg

DRUGS (6)
  1. GLUCOPHAGE [Suspect]
     Route: 048
     Dates: start: 20090618, end: 20090618
  2. ATARAX [Suspect]
     Dosage: 25MG TABLET
     Route: 048
     Dates: start: 20090618, end: 20090618
  3. ATHYMIL [Suspect]
     Dosage: FORM-TABS
     Route: 048
     Dates: start: 20090618, end: 20090618
  4. DAFLON [Concomitant]
     Dosage: STOPPED
     Route: 048
  5. GLUCOR [Concomitant]
     Dosage: STOPPED
     Route: 048
  6. RISPERDAL [Concomitant]
     Dosage: STOPPED
     Route: 048

REACTIONS (4)
  - HYPOTENSION [None]
  - MEDICATION ERROR [None]
  - SOMNOLENCE [None]
  - WRONG DRUG ADMINISTERED [None]
